FAERS Safety Report 5701679-4 (Version None)
Quarter: 2008Q2

REPORT INFORMATION
  Report Type: 
  Country: None (occurrence: None)
  Receive Date: 20080409
  Receipt Date: 20080409
  Transmission Date: 20081010
  Serious: Yes (Other)
  Sender: FDA-Public Use
  Company Number: None

PATIENT
  Age: 10 Year
  Sex: Female
  Weight: 45.8133 kg

DRUGS (1)
  1. SINGULAIR [Suspect]
     Indication: COUGH
     Dosage: 1 TABLET AT NIGHT PO
     Route: 048
     Dates: start: 20010101, end: 20080305

REACTIONS (8)
  - ABDOMINAL PAIN UPPER [None]
  - ASTHMA [None]
  - DYSPEPSIA [None]
  - HALLUCINATION [None]
  - INSOMNIA [None]
  - MIGRAINE [None]
  - MOOD SWINGS [None]
  - SUICIDAL IDEATION [None]
